FAERS Safety Report 10347895 (Version 1)
Quarter: 2014Q3

REPORT INFORMATION
  Report Type: Spontaneous
  Country: ES (occurrence: ES)
  Receive Date: 20140729
  Receipt Date: 20140729
  Transmission Date: 20150326
  Serious: Yes (Other)
  Sender: FDA-Public Use
  Company Number: ES-WATSON-2014-16168

PATIENT
  Age: 39 Year
  Sex: Male

DRUGS (1)
  1. TESTOSTERONE CYPIONATE (UNKNOWN) [Suspect]
     Active Substance: TESTOSTERONE CYPIONATE
     Indication: MUSCLE BUILDING THERAPY
     Dosage: 250 MG, 1/WEEK
     Route: 065

REACTIONS (2)
  - Pulmonary eosinophilia [Recovered/Resolved]
  - Drug abuse [Recovered/Resolved]
